FAERS Safety Report 13514011 (Version 1)
Quarter: 2017Q2

REPORT INFORMATION
  Report Type: Spontaneous
  Country: US (occurrence: US)
  Receive Date: 20170504
  Receipt Date: 20170504
  Transmission Date: 20170830
  Serious: Yes (Other)
  Sender: FDA-Public Use
  Company Number: US-PFIZER INC-2017188512

PATIENT
  Age: 49 Year
  Sex: Male

DRUGS (7)
  1. TRAZODONE [Suspect]
     Active Substance: TRAZODONE HYDROCHLORIDE
     Indication: DEPRESSION
     Dosage: 50 MG, DAILY
  2. ISOCARBOXAZID [Suspect]
     Active Substance: ISOCARBOXAZID
     Indication: DEPRESSION
     Dosage: 20 MG, DAILY
  3. ISOCARBOXAZID [Suspect]
     Active Substance: ISOCARBOXAZID
     Dosage: 30 MG, DAILY
  4. METHYLPHENIDATE HYDROCHLORIDE. [Suspect]
     Active Substance: METHYLPHENIDATE HYDROCHLORIDE
     Indication: DEPRESSION
     Dosage: 10 TO 20 MG, ALTERNATE DAY
  5. TRAZODONE [Suspect]
     Active Substance: TRAZODONE HYDROCHLORIDE
     Dosage: 150 MG, DAILY
  6. TRAZODONE [Suspect]
     Active Substance: TRAZODONE HYDROCHLORIDE
     Dosage: 50 MG, DAILY
  7. ISOCARBOXAZID [Suspect]
     Active Substance: ISOCARBOXAZID
     Dosage: 20 MG, DAILY

REACTIONS (7)
  - Chest discomfort [Recovering/Resolving]
  - Muscle twitching [Recovering/Resolving]
  - Dyspnoea [Recovering/Resolving]
  - Serotonin syndrome [Recovering/Resolving]
  - Anxiety [Recovering/Resolving]
  - Musculoskeletal stiffness [Recovering/Resolving]
  - Disturbance in attention [Recovering/Resolving]
